FAERS Safety Report 9615748 (Version 2)
Quarter: 2013Q4

REPORT INFORMATION
  Report Type: Spontaneous
  Country: US (occurrence: US)
  Receive Date: 20131011
  Receipt Date: 20131011
  Transmission Date: 20140711
  Serious: No
  Sender: FDA-Public Use
  Company Number: US-PURDUE-USA-2013-0098618

PATIENT
  Sex: Male

DRUGS (2)
  1. BUTRANS [Suspect]
     Indication: PAIN
     Dosage: 20 MCG/HR, 1/WEEK
     Route: 062
     Dates: start: 20121228, end: 20130115
  2. BUTRANS [Suspect]
     Dosage: 10 MCG, 1/WEEK
     Route: 062
     Dates: start: 20130115, end: 20130203

REACTIONS (3)
  - Rales [Recovered/Resolved]
  - Drug effect decreased [Recovered/Resolved]
  - Dyspnoea [Recovered/Resolved]
